FAERS Safety Report 22079295 (Version 1)
Quarter: 2023Q1

REPORT INFORMATION
  Report Type: Spontaneous
  Country: US (occurrence: US)
  Receive Date: 20230309
  Receipt Date: 20230309
  Transmission Date: 20230417
  Serious: No
  Sender: FDA-Public Use
  Company Number: US-HORIZON THERAPEUTICS-HZN-2021-001185

PATIENT

DRUGS (5)
  1. RAVICTI [Suspect]
     Active Substance: GLYCEROL PHENYLBUTYRATE
     Indication: Urea cycle disorder
     Dosage: 2 ML, TID
     Route: 048
  2. RAVICTI [Suspect]
     Active Substance: GLYCEROL PHENYLBUTYRATE
     Indication: Ornithine transcarbamoylase deficiency
     Dosage: 2 ML, TID
     Route: 048
  3. MULTIVITAMIN IRON [Concomitant]
  4. CITRULLINE 1000 [Concomitant]
     Dosage: UNK
  5. ZYRTEC [Concomitant]
     Active Substance: CETIRIZINE HYDROCHLORIDE

REACTIONS (6)
  - Memory impairment [Unknown]
  - Headache [Unknown]
  - Nasopharyngitis [Unknown]
  - Product use complaint [Unknown]
  - Product administration error [Unknown]
  - Product dose omission issue [Unknown]
